FAERS Safety Report 5213541-4 (Version None)
Quarter: 2007Q1

REPORT INFORMATION
  Report Type: 
  Country: None (occurrence: None)
  Receive Date: 20070119
  Receipt Date: 20070108
  Transmission Date: 20070707
  Serious: Yes (Other)
  Sender: FDA-Public Use
  Company Number: 2007UW00959

PATIENT
  Age: 65 Year
  Sex: Male
  Weight: 102.7 kg

DRUGS (8)
  1. ROSUVASTATIN [Suspect]
     Indication: DYSLIPIDAEMIA
     Route: 048
     Dates: start: 20060824
  2. ABT-335 [Suspect]
     Route: 048
  3. METFORMIN [Concomitant]
     Indication: DIABETES MELLITUS
     Dates: start: 20060404
  4. GLIMEPIRIDE [Concomitant]
     Indication: DIABETES MELLITUS
  5. ASPIRIN [Concomitant]
     Indication: CARDIOVASCULAR EVENT PROPHYLAXIS
     Dates: start: 20040101
  6. CINNAMIN [Concomitant]
     Indication: MEDICAL DIET
     Dates: start: 20050101
  7. VICKS FORMULA 44M [Concomitant]
     Indication: SEASONAL ALLERGY
     Route: 048
     Dates: start: 20060817
  8. MEDINITE [Concomitant]
     Indication: SEASONAL ALLERGY
     Route: 048
     Dates: start: 20060817

REACTIONS (1)
  - SQUAMOUS CELL CARCINOMA [None]
